FAERS Safety Report 18671498 (Version 1)
Quarter: 2020Q4

REPORT INFORMATION
  Report Type: Spontaneous
  Country: US (occurrence: US)
  Receive Date: 20201228
  Receipt Date: 20201228
  Transmission Date: 20210114
  Serious: Yes (Life-Threatening, Hospitalization)
  Sender: FDA-Public Use
  Company Number: US-SAMSUNG BIOEPIS-SB-2020-38181

PATIENT
  Age: 31 Year
  Sex: Female

DRUGS (2)
  1. INFLIXIMAB [Suspect]
     Active Substance: INFLIXIMAB
     Indication: CROHN^S DISEASE
     Dosage: UNKNOWN
     Route: 065
  2. DAPSONE. [Suspect]
     Active Substance: DAPSONE
     Indication: HYPERSENSITIVITY VASCULITIS
     Dosage: UNKNOWN
     Route: 065

REACTIONS (16)
  - Blood lactate dehydrogenase increased [Unknown]
  - Cerebrovascular accident [Unknown]
  - Malaise [Unknown]
  - Hypersomnia [Unknown]
  - Anaemia [Unknown]
  - Haptoglobin decreased [Unknown]
  - Transaminases increased [Recovered/Resolved]
  - Lethargy [Unknown]
  - Cerebral infarction [Unknown]
  - Restrictive cardiomyopathy [Unknown]
  - Asthenia [Not Recovered/Not Resolved]
  - Drug reaction with eosinophilia and systemic symptoms [Unknown]
  - Hypersensitivity vasculitis [Unknown]
  - Disorientation [Unknown]
  - Hyperbilirubinaemia [Recovered/Resolved]
  - Eosinophilic myocarditis [Unknown]
